FAERS Safety Report 7101731-5 (Version None)
Quarter: 2010Q4

REPORT INFORMATION
  Report Type: 
  Country: None (occurrence: None)
  Receive Date: 20101115
  Receipt Date: 20101103
  Transmission Date: 20110411
  Serious: Yes (Hospitalization, Other)
  Sender: FDA-Public Use
  Company Number: ES-ELI_LILLY_AND_COMPANY-ES201011000952

PATIENT
  Sex: Female
  Weight: 65 kg

DRUGS (5)
  1. FORTEO [Suspect]
     Indication: OSTEOPOROSIS
     Dosage: 20 UG, DAILY (1/D)
     Route: 058
     Dates: start: 20101004, end: 20101102
  2. MASTICAL [Concomitant]
     Indication: BLOOD CALCIUM
     Dosage: 1 D/F, 2/D
     Route: 048
  3. HIDROFEROL [Concomitant]
     Indication: VITAMIN D DEFICIENCY
     Dosage: 1 D/F, WEEKLY (1/W)
     Route: 048
  4. AUGMENTIN XR [Concomitant]
     Indication: PNEUMONIA
     Dosage: 2 D/F, 2/D
     Route: 048
  5. CRESTOR [Concomitant]
     Indication: HYPERCHOLESTEROLAEMIA
     Dosage: 1 D/F, DAILY (1/D)
     Route: 048

REACTIONS (3)
  - CEREBROVASCULAR ACCIDENT [None]
  - HYPERNATRAEMIA [None]
  - LEUKOCYTOSIS [None]
